FAERS Safety Report 4429562-5 (Version None)
Quarter: 2004Q3

REPORT INFORMATION
  Report Type: 
  Country: None (occurrence: None)
  Receive Date: 20040819
  Receipt Date: 20040810
  Transmission Date: 20050211
  Serious: Yes (Hospitalization)
  Sender: FDA-Public Use
  Company Number: FR-GLAXOSMITHKLINE-B0342232A

PATIENT
  Age: 61 Year
  Sex: Female

DRUGS (6)
  1. LAMICTAL [Suspect]
     Dosage: 2UD UNKNOWN
     Route: 048
     Dates: start: 20040315, end: 20040427
  2. FENOFIBRATE [Concomitant]
     Route: 048
  3. SULFARLEM [Concomitant]
  4. TEMESTA [Concomitant]
  5. TRIMEPRAZINE TAB [Concomitant]
  6. DILTIAZEM HYDROCHLORIDE [Concomitant]

REACTIONS (5)
  - DYSPHAGIA [None]
  - EXANTHEM [None]
  - MOUTH ULCERATION [None]
  - RASH MACULO-PAPULAR [None]
  - TOXIC SKIN ERUPTION [None]
